FAERS Safety Report 4983109-3 (Version None)
Quarter: 2006Q2

REPORT INFORMATION
  Report Type: 
  Country: None (occurrence: None)
  Receive Date: 20060426
  Receipt Date: 20060420
  Transmission Date: 20061013
  Serious: Yes (Hospitalization)
  Sender: FDA-Public Use
  Company Number: PHHO2006AR06366

PATIENT
  Age: 65 Year
  Sex: Female
  Weight: 53 kg

DRUGS (7)
  1. CLONAZEPAM [Concomitant]
     Dates: start: 20060418, end: 20060419
  2. LEVOTHYROXINE SODIUM [Concomitant]
  3. DELTISONA [Concomitant]
  4. OMEPRAZOLE [Concomitant]
  5. BACTRIM DS [Concomitant]
  6. ASPIRIN [Concomitant]
  7. CYCLOSPORINE [Suspect]
     Indication: LIVER TRANSPLANT
     Dosage: 125 MG/DAY
     Route: 048
     Dates: start: 20060325, end: 20060419

REACTIONS (9)
  - ANAL SPHINCTER ATONY [None]
  - COMA [None]
  - DYSPNOEA [None]
  - GRAND MAL CONVULSION [None]
  - HYPERTENSIVE CRISIS [None]
  - HYPOMAGNESAEMIA [None]
  - HYPONATRAEMIA [None]
  - POSTICTAL STATE [None]
  - TACHYCARDIA [None]
